FAERS Safety Report 8272052 (Version 2)
Quarter: 2012Q4

REPORT INFORMATION
  Report Type: 
  Country: US (occurrence: US)
  Receive Date: 20111202
  Receipt Date: 20120925
  Transmission Date: 20130627
  Serious: Yes (Hospitalization, Other)
  Sender: FDA-Public Use
  Company Number: US-US-EMD SERONO, INC.-7097599

PATIENT
  Age: 48 None
  Sex: Female

DRUGS (1)
  1. REBIF [Suspect]
     Indication: MULTIPLE SCLEROSIS
     Route: 058
     Dates: start: 20110516, end: 201109

REACTIONS (7)
  - Gallbladder disorder [Recovered/Resolved]
  - Benign neoplasm [Recovered/Resolved]
  - Gastritis erosive [Recovering/Resolving]
  - Gastrooesophageal reflux disease [Recovering/Resolving]
  - Injection site erythema [Unknown]
  - Injection site urticaria [Unknown]
  - Influenza like illness [Unknown]
